FAERS Safety Report 6945418-8 (Version None)
Quarter: 2010Q3

REPORT INFORMATION
  Report Type: 
  Country: None (occurrence: None)
  Receive Date: 20100827
  Receipt Date: 20100823
  Transmission Date: 20110219
  Serious: Yes (Death, Life-Threatening, Other)
  Sender: FDA-Public Use
  Company Number: PHHY2010MX28757

PATIENT
  Sex: Female

DRUGS (1)
  1. DIOVAN HCT [Suspect]
     Indication: HYPERTENSION
     Dosage: ONE TABLET (160/12.5 MG) DAILY
     Route: 048
     Dates: start: 20040101, end: 20100405

REACTIONS (5)
  - ARTHRALGIA [None]
  - COMA [None]
  - FIBROMYALGIA [None]
  - MYALGIA [None]
  - RESPIRATORY ARREST [None]
